FAERS Safety Report 6084292-1 (Version None)
Quarter: 2009Q1

REPORT INFORMATION
  Report Type: 
  Country: None (occurrence: None)
  Receive Date: 20090217
  Receipt Date: 20080911
  Transmission Date: 20090719
  Serious: Yes (Other)
  Sender: FDA-Public Use
  Company Number: US025344

PATIENT
  Sex: Female
  Weight: 80 kg

DRUGS (2)
  1. RIBOMUSTIN [Suspect]
     Indication: NON-HODGKIN'S LYMPHOMA
     Dosage: 160 MG/M2 QD INTRAVENOUS
     Route: 042
     Dates: start: 20080303, end: 20080722
  2. RITUXIMAB [Suspect]
     Indication: B-CELL LYMPHOMA
     Dosage: UNK INTRAVENOUS
     Route: 042

REACTIONS (10)
  - ALANINE AMINOTRANSFERASE INCREASED [None]
  - ARTHRITIS [None]
  - BLOOD IMMUNOGLOBULIN G DECREASED [None]
  - BLOOD IMMUNOGLOBULIN M DECREASED [None]
  - GAMMA-GLUTAMYLTRANSFERASE INCREASED [None]
  - INFECTION [None]
  - LEUKOPENIA [None]
  - LYMPHOCYTE COUNT DECREASED [None]
  - NEUTROPENIA [None]
  - NEUTROPHIL COUNT INCREASED [None]
